FAERS Safety Report 24894332 (Version 1)
Quarter: 2025Q1

REPORT INFORMATION
  Report Type: Report from Study
  Country: US (occurrence: US)
  Receive Date: 20250128
  Receipt Date: 20250128
  Transmission Date: 20250408
  Serious: Yes (Death)
  Sender: BAYER HEALTHCARE PHARMACEUTICALS INC.
  Company Number: US-BAYER-2025A012218

PATIENT
  Age: 79 Year
  Sex: Female
  Weight: 73.469 kg

DRUGS (21)
  1. ADEMPAS [Suspect]
     Active Substance: RIOCIGUAT
     Indication: Pulmonary arterial hypertension
     Dates: start: 20230919
  2. ADEMPAS [Suspect]
     Active Substance: RIOCIGUAT
     Indication: Pulmonary arterial hypertension
     Dosage: 2.5 MG, TID
     Route: 048
  3. FIBER THERAPY (CALCIUM POLYCARBOPHIL) [Concomitant]
     Active Substance: CALCIUM POLYCARBOPHIL
  4. FAMOTIDINE [Concomitant]
     Active Substance: FAMOTIDINE
  5. OMEPRAZOLE [Concomitant]
     Active Substance: OMEPRAZOLE
  6. XARELTO [Concomitant]
     Active Substance: RIVAROXABAN
  7. IMURAN [Concomitant]
     Active Substance: AZATHIOPRINE
  8. POTASSIUM CHLORIDE [Concomitant]
     Active Substance: POTASSIUM CHLORIDE
  9. BACTRIM DS [Concomitant]
     Active Substance: SULFAMETHOXAZOLE\TRIMETHOPRIM
  10. ESCITALOPRAM OXALATE [Concomitant]
     Active Substance: ESCITALOPRAM OXALATE
  11. AZATHIOPRINE [Concomitant]
     Active Substance: AZATHIOPRINE
  12. LOPERAMIDE [Concomitant]
     Active Substance: LOPERAMIDE
  13. LEVOTHYROXINE SODIUM [Concomitant]
     Active Substance: LEVOTHYROXINE SODIUM
  14. OXYGEN [Concomitant]
     Active Substance: OXYGEN
  15. TUMS [Concomitant]
     Active Substance: CALCIUM CARBONATE
  16. FOSAMAX [Concomitant]
     Active Substance: ALENDRONATE SODIUM
  17. FUROSEMIDE [Concomitant]
     Active Substance: FUROSEMIDE
  18. IRON [Concomitant]
     Active Substance: IRON
  19. REMODULIN [Concomitant]
     Active Substance: TREPROSTINIL
  20. ROSUVASTATIN CALCIUM [Concomitant]
     Active Substance: ROSUVASTATIN CALCIUM
  21. ONDANSETRON HYDROCHLORIDE [Concomitant]
     Active Substance: ONDANSETRON HYDROCHLORIDE

REACTIONS (1)
  - Death [Fatal]

NARRATIVE: CASE EVENT DATE: 20250120
